FAERS Safety Report 8261561-8 (Version None)
Quarter: 2012Q2

REPORT INFORMATION
  Report Type: 
  Country: None (occurrence: None)
  Receive Date: 20120405
  Receipt Date: 20120327
  Transmission Date: 20120825
  Serious: Yes (Other)
  Sender: FDA-Public Use
  Company Number: US-BAYER-201023255NA

PATIENT
  Age: 40 Year
  Sex: Female
  Weight: 117.91 kg

DRUGS (13)
  1. IBUPROFEN [Concomitant]
     Dosage: UNK
     Dates: start: 20060101, end: 20070101
  2. CLOTRIMAZOLE W/BETAMETHASONE DIPROPIONAT [Concomitant]
     Dosage: UNK
     Route: 061
     Dates: start: 20060629
  3. YAZ [Suspect]
     Indication: MENORRHAGIA
     Dosage: UNK UNK, UNK
     Route: 048
     Dates: start: 20060811, end: 20060908
  4. BUTALBITAL ACETAMINOPHEN AND CAFFEINE [Concomitant]
     Dosage: UNK
     Route: 048
     Dates: start: 20060629
  5. NAPROXEN [Concomitant]
     Dosage: UNK
     Dates: start: 20060101, end: 20070101
  6. CRESTOR [Concomitant]
     Dosage: UNK
     Dates: start: 20060101
  7. MOBIC [Concomitant]
     Dosage: 7.5 MG, UNK
     Route: 048
     Dates: start: 20060613
  8. TRAMADOL HCL [Concomitant]
     Dosage: UNK
     Dates: end: 20060601
  9. ELAVIL [Concomitant]
     Dosage: 75 MG, UNK
     Route: 048
  10. TOPAMAX [Concomitant]
     Dosage: 100 MG, UNK
     Route: 048
  11. ALBUTEROL [Concomitant]
     Dosage: 2 PUFF(S), UNK
  12. SKELAXIN [Concomitant]
     Dosage: 800 MG, UNK
     Route: 048
     Dates: start: 20060613
  13. FROVA [Concomitant]
     Indication: MIGRAINE
     Dosage: 2.5 MG, UNK
     Route: 048
     Dates: start: 20060629

REACTIONS (5)
  - DEEP VEIN THROMBOSIS [None]
  - PULMONARY EMBOLISM [None]
  - PAIN [None]
  - OEDEMA PERIPHERAL [None]
  - SWELLING [None]
